FAERS Safety Report 8145736-4 (Version None)
Quarter: 2012Q1

REPORT INFORMATION
  Report Type: 
  Country: None (occurrence: None)
  Receive Date: 20120217
  Receipt Date: 20110715
  Transmission Date: 20120608
  Serious: No
  Sender: FDA-Public Use
  Company Number: US-ABBOTT-08P-163-0476870-00

PATIENT
  Sex: Male

DRUGS (5)
  1. IBUPROFEN (ADVIL) [Concomitant]
     Indication: PRODUCT USED FOR UNKNOWN INDICATION
     Route: 048
  2. ASPIRIN [Concomitant]
     Indication: PRODUCT USED FOR UNKNOWN INDICATION
  3. UNNAMED BP MED [Concomitant]
     Indication: BLOOD PRESSURE
  4. SIMCOR [Suspect]
     Indication: BLOOD CHOLESTEROL INCREASED
     Dosage: 1000/40MG ONCE DAILY
  5. SIMCOR [Suspect]
     Indication: BLOOD CHOLESTEROL
     Dosage: 1000/20MG DAILY
     Route: 048
     Dates: start: 20080701

REACTIONS (4)
  - PRURITUS [None]
  - FLUSHING [None]
  - MIDDLE INSOMNIA [None]
  - PARAESTHESIA [None]
